FAERS Safety Report 8506416-6 (Version None)
Quarter: 2012Q3

REPORT INFORMATION
  Report Type: 
  Country: None (occurrence: None)
  Receive Date: 20120712
  Receipt Date: 20120703
  Transmission Date: 20120928
  Serious: Yes (Hospitalization)
  Sender: FDA-Public Use
  Company Number: FR-PFIZER INC-2012161228

PATIENT
  Age: 81 Year
  Sex: Male

DRUGS (15)
  1. MIRTAZAPINE [Suspect]
     Indication: DEPRESSION
     Dosage: UNK
     Route: 048
     Dates: start: 20120102, end: 20120204
  2. NICARDIPINE HCL [Suspect]
     Dosage: 20 MG, UNK
     Dates: end: 20110101
  3. SOTALOL HYDROCHLORIDE [Suspect]
     Dosage: UNK
     Route: 048
     Dates: start: 20090101
  4. ATARAX [Suspect]
     Dosage: 10 MG, UNK
  5. NICARDIPINE HCL [Suspect]
     Dosage: 2 TABLETS DAILY
     Route: 048
     Dates: start: 20070101
  6. NABUMETONE [Suspect]
     Dosage: 500 MG, 500 MG IN THE MORNING AND 500 MG IN THE EVEING
     Dates: start: 20100101
  7. METFORMIN HCL [Suspect]
     Dosage: 1 DOSAGE FORM IN MORNING AND 1 DOSAGE FORM IN EVENING
  8. PIASCLEDINE [Suspect]
     Dosage: 300 MG CAPSULES; 600 MG TO 900 MG DAILY
     Dates: start: 20070101
  9. IBUPROFEN [Suspect]
     Dosage: UNK, AS NEEDED
  10. IRBESARTAN AND HYDROCHLOROTHIAZIDE [Suspect]
     Dosage: 300 MG/25 MG
     Dates: start: 20060101
  11. AVODART [Suspect]
     Dosage: 0.5 MG, 1X/DAY
  12. ZOPICLONE [Suspect]
     Dosage: 7.5 MG IN EVENING
  13. RABEPRAZOLE SODIUM [Suspect]
     Dosage: 20 MG AT MID-DAY AND 20 MG IN EVENING
     Dates: start: 20100101
  14. ATORVASTATIN [Suspect]
     Dosage: 10 MG, 1X/DAY
  15. CODOLIPRANE ADULTES [Suspect]
     Dosage: UNK

REACTIONS (4)
  - PAIN IN EXTREMITY [None]
  - OEDEMA [None]
  - INSOMNIA [None]
  - WOUND [None]
